FAERS Safety Report 4532108-4 (Version None)
Quarter: 2004Q4

REPORT INFORMATION
  Report Type: 
  Country: None (occurrence: None)
  Receive Date: 20041217
  Receipt Date: 20041214
  Transmission Date: 20050328
  Serious: Yes (Disabling)
  Sender: FDA-Public Use
  Company Number: 2004SE06435

PATIENT
  Age: 83 Year
  Sex: Female
  Weight: 47 kg

DRUGS (8)
  1. BLOPRESS [Suspect]
     Indication: HYPERTENSION
     Dosage: 4 MG QD PO
     Route: 048
     Dates: start: 20020417, end: 20031216
  2. BLOPRESS [Suspect]
     Indication: HYPERTENSION
     Dosage: 8 MG QD PO
     Route: 048
     Dates: start: 20031217
  3. NORVASC [Concomitant]
  4. ISOSORBIDE MONONITRATE [Concomitant]
  5. SIMVASTATIN [Concomitant]
  6. TICLOPIDINE HCL [Concomitant]
  7. DESLANOSIDE [Concomitant]
  8. CIMETIDINE [Concomitant]

REACTIONS (8)
  - ATRIAL FIBRILLATION [None]
  - BLOOD PRESSURE SYSTOLIC DECREASED [None]
  - CHEST PAIN [None]
  - ELECTROCARDIOGRAM ST SEGMENT DEPRESSION [None]
  - MYOCARDIAL ISCHAEMIA [None]
  - PALPITATIONS [None]
  - THERAPY NON-RESPONDER [None]
  - VENTRICULAR EXTRASYSTOLES [None]
